FAERS Safety Report 4949753-4 (Version None)
Quarter: 2006Q1

REPORT INFORMATION
  Report Type: 
  Country: None (occurrence: None)
  Receive Date: 20060315
  Receipt Date: 20060302
  Transmission Date: 20060701
  Serious: Yes (Hospitalization, Other)
  Sender: FDA-Public Use
  Company Number: 2006US-01732

PATIENT
  Sex: Female

DRUGS (1)
  1. FLUOXETINE [Suspect]

REACTIONS (2)
  - ELECTROCARDIOGRAM QT CORRECTED INTERVAL PROLONGED [None]
  - TORSADE DE POINTES [None]
